FAERS Safety Report 11685739 (Version 7)
Quarter: 2017Q1

REPORT INFORMATION
  Report Type: Spontaneous
  Country: US (occurrence: US)
  Receive Date: 20151030
  Receipt Date: 20170323
  Transmission Date: 20170428
  Serious: Yes (Other)
  Sender: FDA-Public Use
  Company Number: PHEH2015US021895

PATIENT
  Sex: Female
  Weight: 56.69 kg

DRUGS (4)
  1. ONDANSETRON [Suspect]
     Active Substance: ONDANSETRON
     Indication: VOMITING IN PREGNANCY
     Dosage: 4 MG/2ML, PRN
     Route: 042
  2. ZOFRAN [Suspect]
     Active Substance: ONDANSETRON HYDROCHLORIDE
     Indication: VOMITING IN PREGNANCY
     Dosage: 8 MG, UNK
     Route: 048
  3. ONDANSETRON [Suspect]
     Active Substance: ONDANSETRON
     Indication: PRODUCT USED FOR UNKNOWN INDICATION
     Route: 048
  4. ONDANSETRON. [Suspect]
     Active Substance: ONDANSETRON
     Indication: VOMITING IN PREGNANCY
     Dosage: 4 MG, UNK
     Route: 048
     Dates: start: 20110329, end: 20110526

REACTIONS (13)
  - Maternal exposure during pregnancy [Unknown]
  - Anxiety [Unknown]
  - Eclampsia [Unknown]
  - Amniotic cavity infection [Unknown]
  - Anhedonia [Unknown]
  - Synovial cyst [Unknown]
  - Funisitis [Unknown]
  - Emotional distress [Unknown]
  - Product use issue [Unknown]
  - Gestational diabetes [Unknown]
  - Vasculitis [Unknown]
  - Phlebitis [Unknown]
  - Pain [Unknown]
